FAERS Safety Report 13145803 (Version 1)
Quarter: 2017Q1

REPORT INFORMATION
  Report Type: Spontaneous
  Country: US (occurrence: US)
  Receive Date: 20170124
  Receipt Date: 20170124
  Transmission Date: 20170428
  Serious: Yes (Hospitalization)
  Sender: FDA-Public Use
  Company Number: US-RELYPSA-RLY2017000309

PATIENT
  Age: 81 Year
  Sex: Female

DRUGS (5)
  1. ILEVRO [Concomitant]
     Active Substance: NEPAFENAC
  2. VELTASSA [Suspect]
     Active Substance: PATIROMER
     Indication: HYPERKALAEMIA
     Dosage: 8.4 G, QD
     Route: 048
     Dates: start: 20161215
  3. DUREZOL [Concomitant]
     Active Substance: DIFLUPREDNATE
  4. ALBUTEROL                          /00139501/ [Concomitant]
     Active Substance: ALBUTEROL
  5. FERROUS SULFATE. [Concomitant]
     Active Substance: FERROUS SULFATE

REACTIONS (3)
  - Peripheral swelling [Not Recovered/Not Resolved]
  - Oxygen saturation decreased [Not Recovered/Not Resolved]
  - Cardiac disorder [Not Recovered/Not Resolved]

NARRATIVE: CASE EVENT DATE: 201701
